FAERS Safety Report 10235151 (Version 3)
Quarter: 2015Q1

REPORT INFORMATION
  Report Type: Report from Study
  Country: IT (occurrence: IT)
  Receive Date: 20140613
  Receipt Date: 20150214
  Transmission Date: 20150720
  Serious: Yes (Hospitalization)
  Sender: FDA-Public Use
  Company Number: PHHO2014IT008205

PATIENT
  Age: 17 Year
  Sex: Female
  Weight: 58 kg

DRUGS (5)
  1. FTY [Suspect]
     Active Substance: FINGOLIMOD HYDROCHLORIDE
     Indication: MULTIPLE SCLEROSIS
     Route: 065
     Dates: start: 20140526, end: 20140603
  2. GOLAMIXIN [Suspect]
     Active Substance: BENZOCAINE\CETRIMONIUM BROMIDE\TYROTHRICIN
     Indication: TONSILLITIS
     Dosage: 30 ML, QD
     Route: 065
     Dates: start: 20140520, end: 20140527
  3. INTERFERON BETA-1A [Concomitant]
     Active Substance: INTERFERON BETA-1A
     Indication: PRODUCT USED FOR UNKNOWN INDICATION
     Dosage: 30 UG, ONE/WEEK
     Route: 030
     Dates: start: 20120406, end: 20140515
  4. MACLADIN [Suspect]
     Active Substance: CLARITHROMYCIN
     Indication: TONSILLITIS
     Dosage: 500 MG, QD
     Route: 048
     Dates: start: 20140520, end: 20140527
  5. OKI [Suspect]
     Active Substance: KETOPROFEN LYSINE
     Indication: TONSILLITIS
     Dosage: 150 MG, QD
     Route: 048
     Dates: start: 20140520, end: 20140527

REACTIONS (1)
  - Hypersensitivity vasculitis [Recovered/Resolved]

NARRATIVE: CASE EVENT DATE: 20140603
